FAERS Safety Report 5861359-1 (Version None)
Quarter: 2008Q3

REPORT INFORMATION
  Report Type: 
  Country: None (occurrence: None)
  Receive Date: 20080827
  Receipt Date: 20080429
  Transmission Date: 20090109
  Serious: No
  Sender: FDA-Public Use
  Company Number: US-ABBOTT-08P-163-0449454-00

PATIENT
  Sex: Female
  Weight: 66.738 kg

DRUGS (9)
  1. COATED PDS [Suspect]
     Indication: CARDIAC DISORDER
     Route: 048
     Dates: start: 20080424
  2. ATORVASTATIN CALCIUM [Concomitant]
     Indication: CARDIAC DISORDER
     Route: 048
  3. LEVOTHYROXINE SODIUM [Concomitant]
     Indication: HYPOTHYROIDISM
     Route: 048
  4. GABAPENTIN [Concomitant]
     Indication: SPINAL DISORDER
     Route: 048
  5. CLOPIDOGREL [Concomitant]
     Indication: CARDIAC DISORDER
     Route: 048
  6. OMEPRAZOLE [Concomitant]
     Indication: GASTROOESOPHAGEAL REFLUX DISEASE
     Route: 048
  7. CANDESARTAN CILEXETIL [Concomitant]
     Indication: CARDIAC DISORDER
     Route: 048
  8. NORTRIPTYLINE HCL [Concomitant]
     Indication: DEPRESSION
     Route: 048
  9. ALENDRONATE SODIUM [Concomitant]
     Indication: OSTEOPOROSIS
     Route: 048

REACTIONS (2)
  - JOINT SWELLING [None]
  - WEIGHT INCREASED [None]
